FAERS Safety Report 16197052 (Version 1)
Quarter: 2019Q2

REPORT INFORMATION
  Report Type: Spontaneous
  Country: US (occurrence: US)
  Receive Date: 20190412
  Receipt Date: 20190412
  Transmission Date: 20190711
  Serious: Yes (Disabling)
  Sender: FDA-Public Use
  Company Number: None

PATIENT
  Age: 68 Year
  Sex: Female
  Weight: 54 kg

DRUGS (1)
  1. CYMBALTA [Suspect]
     Active Substance: DULOXETINE HYDROCHLORIDE
     Indication: DEPRESSION
     Dates: start: 20130401, end: 20190209

REACTIONS (9)
  - Nausea [None]
  - Gastric disorder [None]
  - Loss of personal independence in daily activities [None]
  - Tremor [None]
  - Weight decreased [None]
  - Decreased appetite [None]
  - Anxiety [None]
  - Sensation of foreign body [None]
  - Crying [None]

NARRATIVE: CASE EVENT DATE: 20190309
